FAERS Safety Report 16625159 (Version 1)
Quarter: 2019Q3

REPORT INFORMATION
  Report Type: Spontaneous
  Country: US (occurrence: US)
  Receive Date: 20190611
  Receipt Date: 20190611
  Transmission Date: 20191004
  Serious: Yes (Hospitalization)
  Sender: FDA-Public Use
  Company Number: None

PATIENT
  Age: 70 Year
  Sex: Female

DRUGS (28)
  1. CONSTULOSE [Concomitant]
     Active Substance: LACTULOSE
  2. LOSARTAN POT [Concomitant]
     Active Substance: LOSARTAN POTASSIUM
  3. CRANBERRY. [Concomitant]
     Active Substance: CRANBERRY
  4. GABAPENTIN. [Concomitant]
     Active Substance: GABAPENTIN
  5. HYDROCOC/APAP [Concomitant]
  6. LINZESS [Concomitant]
     Active Substance: LINACLOTIDE
  7. NOVOLOG [Concomitant]
     Active Substance: INSULIN ASPART
  8. COENZYME Q10 [Concomitant]
     Active Substance: UBIDECARENONE
  9. IRON [Concomitant]
     Active Substance: IRON
  10. LEVEMIR [Concomitant]
     Active Substance: INSULIN DETEMIR
  11. ALBUTEROL NEB [Concomitant]
     Active Substance: ALBUTEROL
  12. CALCIUM +D [Concomitant]
     Active Substance: CALCIUM\VITAMIN D
  13. AMITRIPTYLIN TAB [Concomitant]
  14. CARISOPRODOL. [Concomitant]
     Active Substance: CARISOPRODOL
  15. MECLIZINE [Concomitant]
     Active Substance: MECLIZINE HYDROCHLORIDE
  16. METOCLOPRAM [Concomitant]
     Active Substance: METOCLOPRAMIDE
  17. SILDENAFIL 20MG TAB [Suspect]
     Active Substance: SILDENAFIL
     Indication: PULMONARY ARTERIAL HYPERTENSION
     Route: 048
     Dates: start: 20180128
  18. NEXIUM [Concomitant]
     Active Substance: ESOMEPRAZOLE MAGNESIUM
  19. ASMANEX 60 ER [Concomitant]
  20. DIGOXIN. [Concomitant]
     Active Substance: DIGOXIN
  21. KEPPRA [Concomitant]
     Active Substance: LEVETIRACETAM
  22. LORAZEPAM. [Concomitant]
     Active Substance: LORAZEPAM
  23. NIFEDPINE [Concomitant]
  24. ALLEGRA ALRG TAB [Concomitant]
  25. ASPIRIN. [Concomitant]
     Active Substance: ASPIRIN
  26. MIRALAX [Concomitant]
     Active Substance: POLYETHYLENE GLYCOL 3350
  27. NITROFURMAC [Concomitant]
  28. ONDANSETRON [Concomitant]
     Active Substance: ONDANSETRON

REACTIONS (4)
  - Respiratory tract infection [None]
  - Oral infection [None]
  - Urinary tract infection [None]
  - Pneumonia [None]

NARRATIVE: CASE EVENT DATE: 20190603
